FAERS Safety Report 10073658 (Version 3)
Quarter: 2014Q2

REPORT INFORMATION
  Report Type: Spontaneous
  Country: US (occurrence: US)
  Receive Date: 20140411
  Receipt Date: 20140603
  Transmission Date: 20141212
  Serious: No
  Sender: FDA-Public Use
  Company Number: US-PFIZER INC-2014099558

PATIENT
  Sex: Female

DRUGS (4)
  1. LYRICA [Suspect]
     Dosage: 75 MG, 3X/DAY
     Dates: start: 20140203, end: 20140211
  2. LYRICA [Suspect]
     Dosage: 75 MG, DAILY
     Dates: start: 20140212, end: 20140212
  3. LYRICA [Suspect]
     Dosage: 100 MG, 2X/DAY
     Dates: start: 20140213, end: 20140217
  4. LYRICA [Suspect]
     Dosage: 75 MG, DAILY
     Dates: start: 20140218, end: 20140224

REACTIONS (2)
  - Incoherent [Unknown]
  - Hallucination [Unknown]
